FAERS Safety Report 16785878 (Version 2)
Quarter: 2020Q2

REPORT INFORMATION
  Report Type: Not Available
  Country: US (occurrence: US)
  Receive Date: 20190909
  Receipt Date: 20200616
  Transmission Date: 20200713
  Serious: Yes (Other)
  Sender: FDA-Public Use
  Company Number: US-NEUROCRINE BIOSCIENCES INC.-2019NBI02530

PATIENT
  Age: 79 Year
  Sex: Male

DRUGS (7)
  1. WARFARIN [Concomitant]
     Active Substance: WARFARIN
  2. ALLOPURINOL. [Concomitant]
     Active Substance: ALLOPURINOL
  3. LAMOTRIGINE. [Concomitant]
     Active Substance: LAMOTRIGINE
  4. INGREZZA [Suspect]
     Active Substance: VALBENAZINE
     Indication: TARDIVE DYSKINESIA
     Route: 048
     Dates: start: 20190528
  5. SINEMET [Concomitant]
     Active Substance: CARBIDOPA\LEVODOPA
  6. CLONAZEPAM. [Concomitant]
     Active Substance: CLONAZEPAM
  7. DOXEPIN [Concomitant]
     Active Substance: DOXEPIN

REACTIONS (2)
  - Weight increased [Not Recovered/Not Resolved]
  - Leukaemia [Not Recovered/Not Resolved]
